FAERS Safety Report 15213620 (Version 1)
Quarter: 2018Q3

REPORT INFORMATION
  Report Type: Report from Study
  Country: None (occurrence: GB)
  Receive Date: 20180730
  Receipt Date: 20180730
  Transmission Date: 20181010
  Serious: Yes (Disabling, Other)
  Sender: FDA-Public Use
  Company Number: GB-ABBVIE-18K-167-2430944-00

PATIENT
  Sex: Female

DRUGS (2)
  1. HUMIRA [Suspect]
     Active Substance: ADALIMUMAB
     Indication: RHEUMATOID ARTHRITIS
     Route: 058
     Dates: start: 20170208, end: 201806
  2. HUMIRA [Suspect]
     Active Substance: ADALIMUMAB
     Route: 058
     Dates: start: 20180721

REACTIONS (5)
  - Eye infection [Unknown]
  - Eye oedema [Unknown]
  - Blindness transient [Recovered/Resolved]
  - Lichen planus [Not Recovered/Not Resolved]
  - Mouth ulceration [Recovering/Resolving]

NARRATIVE: CASE EVENT DATE: 2017
